FAERS Safety Report 4682186-7 (Version None)
Quarter: 2005Q2

REPORT INFORMATION
  Report Type: 
  Country: None (occurrence: None)
  Receive Date: 20050603
  Receipt Date: 20050603
  Transmission Date: 20051028
  Serious: No
  Sender: FDA-Public Use
  Company Number: None

PATIENT
  Sex: Male
  Weight: 118.5 kg

DRUGS (10)
  1. GEMCITABINE [Suspect]
     Indication: PANCREATIC CARCINOMA
     Dosage: SEE IMAGE
     Route: 042
     Dates: start: 20041008
  2. ACIPHEX [Concomitant]
  3. ALDACTONE [Concomitant]
  4. COREG [Concomitant]
  5. COUMADIN [Concomitant]
  6. INSULIN [Concomitant]
  7. KEFLEX [Concomitant]
  8. LASIX [Concomitant]
  9. LIPRAM [Concomitant]
  10. ZANTAC [Concomitant]

REACTIONS (10)
  - ABASIA [None]
  - ASTHENIA [None]
  - CELLULITIS [None]
  - DEHYDRATION [None]
  - DIZZINESS [None]
  - DYSPNOEA [None]
  - DYSSTASIA [None]
  - FALL [None]
  - OEDEMA PERIPHERAL [None]
  - ORAL INTAKE REDUCED [None]
